FAERS Safety Report 23271271 (Version 2)
Quarter: 2023Q4

REPORT INFORMATION
  Report Type: Report from Study
  Country: BR (occurrence: BR)
  Receive Date: 20231207
  Receipt Date: 20231215
  Transmission Date: 20240109
  Serious: Yes (Death, Life-Threatening, Hospitalization, Other)
  Sender: FDA-Public Use
  Company Number: BR-002147023-NVSC2023BR256891

PATIENT
  Sex: Female

DRUGS (2)
  1. TAFINLAR [Suspect]
     Active Substance: DABRAFENIB MESYLATE
     Indication: Metastatic malignant melanoma
     Dosage: UNK
     Route: 065
  2. MEKINIST [Suspect]
     Active Substance: TRAMETINIB DIMETHYL SULFOXIDE
     Indication: Metastatic malignant melanoma
     Dosage: UNK
     Route: 065

REACTIONS (8)
  - Septic shock [Fatal]
  - Diverticulitis [Fatal]
  - Pneumonia [Fatal]
  - Central nervous system lesion [Fatal]
  - Intestinal perforation [Unknown]
  - Gastrointestinal disorder [Unknown]
  - Femur fracture [Unknown]
  - Fall [Unknown]
